FAERS Safety Report 10565436 (Version 5)
Quarter: 2015Q1

REPORT INFORMATION
  Report Type: Spontaneous
  Country: US (occurrence: US)
  Receive Date: 20141105
  Receipt Date: 20150113
  Transmission Date: 20150720
  Serious: Yes (Death, Other)
  Sender: FDA-Public Use
  Company Number: US-PFIZER INC-2014300999

PATIENT
  Age: 76 Year
  Sex: Male
  Weight: 82 kg

DRUGS (16)
  1. FERROUS GLUCONATE [Concomitant]
     Active Substance: FERROUS GLUCONATE
     Dosage: 700 MG, 1X/DAY
     Route: 048
  2. OXYGEN. [Concomitant]
     Active Substance: OXYGEN
     Dosage: 3 L, 100% OF THE TIME
     Route: 045
  3. SENIOR MEN^S MULTIVITAMIN [Concomitant]
     Dosage: 1 DF, UNK (SENIOR MEN^S MULTIVITAMIN)
     Route: 048
  4. OMEPRAZOLE. [Concomitant]
     Active Substance: OMEPRAZOLE
     Dosage: 20 MG, UNK
     Route: 048
  5. VITAMIN C [Concomitant]
     Active Substance: ASCORBIC ACID
     Dosage: 500 MG, 1X/DAY
     Route: 048
  6. COZAAR [Concomitant]
     Active Substance: LOSARTAN POTASSIUM
     Dosage: 25 MG, 1X/DAY
     Route: 048
  7. SPIRIVA [Concomitant]
     Active Substance: TIOTROPIUM BROMIDE MONOHYDRATE
     Dosage: INHALE ONE 18MCG CAPSULE DAILY
     Route: 055
  8. REVATIO [Suspect]
     Active Substance: SILDENAFIL CITRATE
     Indication: PULMONARY HYPERTENSION
     Dosage: 20 MG, 3X/DAY
     Route: 048
     Dates: start: 201105
  9. POTASSIUM CHLORIDE. [Concomitant]
     Active Substance: POTASSIUM CHLORIDE
     Dosage: 8MEQ, 1 TABLET 2X/DAY ALTERNATING WITH 1 TABLET DAILY
  10. COUMADIN [Concomitant]
     Active Substance: WARFARIN SODIUM
     Dosage: 1MG TABLET, TWO TABLETS 3X/WEEK AND 1 TABLET 4X/WEEK ALTERNATING.
  11. COREG [Concomitant]
     Active Substance: CARVEDILOL
     Dosage: 25MG TABLET 1/2 TABLET IN THE MORNING AND 1 TABLET IN THE EVENING
     Route: 048
  12. ALBUTEROL. [Concomitant]
     Active Substance: ALBUTEROL
     Dosage: 90 MCG, 2 PUFFS, EVERY 4 HOURS AS NEEDED
  13. FORADIL [Concomitant]
     Active Substance: FORMOTEROL FUMARATE
     Dosage: 12 IU, 2X/DAY
     Route: 055
  14. REVATIO [Suspect]
     Active Substance: SILDENAFIL CITRATE
     Indication: CARDIAC FAILURE CONGESTIVE
  15. TIKOSYN [Suspect]
     Active Substance: DOFETILIDE
     Dosage: 500 MCG, 2X/DAY
     Route: 048
  16. DEMADEX [Concomitant]
     Active Substance: TORSEMIDE
     Dosage: ONE FULL MORNING TABLET AND 1/2 A TABLET IN THE AFTERNOON
     Route: 048

REACTIONS (2)
  - Dyspnoea [Unknown]
  - Pulmonary oedema [Fatal]

NARRATIVE: CASE EVENT DATE: 20140707
